FAERS Safety Report 5638214-5 (Version None)
Quarter: 2008Q1

REPORT INFORMATION
  Report Type: 
  Country: None (occurrence: None)
  Receive Date: 20080221
  Receipt Date: 20070918
  Transmission Date: 20080703
  Serious: Yes (Life-Threatening, Hospitalization)
  Sender: FDA-Public Use
  Company Number: CFX20070008

PATIENT
  Age: 56 Year
  Sex: Male
  Weight: 86.1834 kg

DRUGS (5)
  1. CIPROFLOXACIN [Suspect]
     Indication: PAIN
     Dosage: 500 MG ONCE PO
     Route: 048
     Dates: start: 20070810, end: 20070810
  2. CIPROFLOXACIN [Suspect]
     Indication: PROPHYLAXIS
     Dosage: 500 MG ONCE PO
     Route: 048
     Dates: start: 20070810, end: 20070810
  3. ENDOCET                                  5/325 MG [Suspect]
     Indication: BIOPSY PROSTATE
     Dosage: 2 TABS ONCE PO
     Route: 048
     Dates: start: 20070810, end: 20070810
  4. DIAZEPAM [Suspect]
     Indication: SEDATION
     Dosage: 5 MG ONCE PO
     Route: 048
     Dates: start: 20070810, end: 20070810
  5. VYTORIN [Concomitant]

REACTIONS (22)
  - AGITATION [None]
  - ALTERED STATE OF CONSCIOUSNESS [None]
  - ASTHENIA [None]
  - BALANCE DISORDER [None]
  - BRADYCARDIA [None]
  - CARDIO-RESPIRATORY ARREST [None]
  - COLD SWEAT [None]
  - CONVULSION [None]
  - DYSKINESIA [None]
  - DYSLIPIDAEMIA [None]
  - EYE ROLLING [None]
  - FATIGUE [None]
  - HALLUCINATION [None]
  - HEADACHE [None]
  - HYPERHIDROSIS [None]
  - NAUSEA [None]
  - PALLOR [None]
  - PROSTATIC SPECIFIC ANTIGEN INCREASED [None]
  - PROSTATOMEGALY [None]
  - SINUS BRADYCARDIA [None]
  - SOMNOLENCE [None]
  - TRICUSPID VALVE INCOMPETENCE [None]
